FAERS Safety Report 10066287 (Version 1)
Quarter: 2014Q2

REPORT INFORMATION
  Report Type: Spontaneous
  Country: US (occurrence: US)
  Receive Date: 20140408
  Receipt Date: 20140408
  Transmission Date: 20141212
  Serious: No
  Sender: FDA-Public Use
  Company Number: US-009507513-1404USA001775

PATIENT
  Sex: Female

DRUGS (1)
  1. PROPECIA [Suspect]
     Dosage: 1 MG, UNK

REACTIONS (2)
  - Pregnancy [Recovered/Resolved]
  - Exposure via father [Recovered/Resolved]
